FAERS Safety Report 4366160-6 (Version None)
Quarter: 2004Q2

REPORT INFORMATION
  Report Type: 
  Country: None (occurrence: None)
  Receive Date: 20040524
  Receipt Date: 20040510
  Transmission Date: 20050107
  Serious: No
  Sender: FDA-Public Use
  Company Number: 04P-056-0258404-00

PATIENT
  Sex: Male

DRUGS (5)
  1. DEPAKINE SOLUTION (SODIUM VALPROATE) (SODIUM VALPROATE) (SODIUM VALPRO [Suspect]
     Indication: EPILEPSY
     Dosage: SEE IMAGE
     Dates: start: 20010101, end: 20010101
  2. DEPAKINE SOLUTION (SODIUM VALPROATE) (SODIUM VALPROATE) (SODIUM VALPRO [Suspect]
     Indication: EPILEPSY
     Dosage: SEE IMAGE
     Dates: start: 20010101
  3. TIENAM (TIENAM) [Suspect]
     Indication: POSTOPERATIVE INFECTION
     Dosage: INTRAVENOUS
     Route: 042
     Dates: start: 20010101
  4. TIENAM (TIENAM) [Suspect]
     Indication: PYREXIA
     Dosage: INTRAVENOUS
     Route: 042
     Dates: start: 20010101
  5. AMIKACIN [Concomitant]

REACTIONS (4)
  - CONVULSION [None]
  - DRUG INEFFECTIVE [None]
  - DRUG INTERACTION [None]
  - DRUG LEVEL DECREASED [None]
